FAERS Safety Report 19257420 (Version 3)
Quarter: 2022Q1

REPORT INFORMATION
  Report Type: Report from Study
  Country: CA (occurrence: CA)
  Receive Date: 20210513
  Receipt Date: 20220222
  Transmission Date: 20220423
  Serious: Yes (Other)
  Sender: FDA-Public Use
  Company Number: CA-JNJFOC-20210518747

PATIENT
  Age: 15 Year
  Sex: Female
  Weight: 51.6 kg

DRUGS (2)
  1. REMICADE [Suspect]
     Active Substance: INFLIXIMAB
     Indication: Colitis ulcerative
     Route: 042
     Dates: start: 20191223
  2. CEPHALEXIN [Concomitant]
     Active Substance: CEPHALEXIN
     Indication: Prophylaxis
     Route: 065

REACTIONS (5)
  - Cyst [Not Recovered/Not Resolved]
  - Purulent discharge [Unknown]
  - Off label use [Unknown]
  - Incorrect drug administration rate [Unknown]
  - Product use issue [Unknown]

NARRATIVE: CASE EVENT DATE: 20191223
